FAERS Safety Report 23226633 (Version 1)
Quarter: 2023Q4

REPORT INFORMATION
  Report Type: Spontaneous
  Country: US (occurrence: US)
  Receive Date: 20231124
  Receipt Date: 20231124
  Transmission Date: 20240110
  Serious: No
  Sender: FDA-Public Use
  Company Number: US-SA-SAC20231120000168

PATIENT
  Age: 39 Year
  Sex: Male

DRUGS (2)
  1. DUPIXENT [Suspect]
     Active Substance: DUPILUMAB
     Indication: Asthma
     Dosage: 600MG ON DAY 1
     Route: 058
     Dates: start: 20230831, end: 20230831
  2. DUPIXENT [Suspect]
     Active Substance: DUPILUMAB
     Dosage: 300MG/2ML SQ ON DAY 15, THEN 300MG/2ML SQ EVERY 14 DAYS THEREAFTER
     Route: 058

REACTIONS (2)
  - Illness [Unknown]
  - Eczema [Unknown]

NARRATIVE: CASE EVENT DATE: 20231101
